FAERS Safety Report 4708671-7 (Version None)
Quarter: 2005Q3

REPORT INFORMATION
  Report Type: 
  Country: None (occurrence: None)
  Receive Date: 20050706
  Receipt Date: 20050620
  Transmission Date: 20060218
  Serious: Yes (Other)
  Sender: FDA-Public Use
  Company Number: FACT0500419

PATIENT
  Age: 40 Year
  Sex: Male
  Weight: 92.5 kg

DRUGS (2)
  1. FACTIVE [Suspect]
     Indication: RESPIRATORY TRACT INFECTION BACTERIAL
     Dosage: 320 MG QD ORAL
     Route: 048
     Dates: start: 20050428, end: 20050428
  2. ALLEGRA [Concomitant]

REACTIONS (1)
  - ANAPHYLACTIC REACTION [None]
